FAERS Safety Report 11440269 (Version 1)
Quarter: 2015Q3

REPORT INFORMATION
  Report Type: Spontaneous
  Country: US (occurrence: None)
  Receive Date: 20150831
  Receipt Date: 20150831
  Transmission Date: 20151125
  Serious: Yes (Other)
  Sender: FDA-Public Use
  Company Number: None

PATIENT
  Age: 7 Year
  Sex: Female
  Weight: 44.91 kg

DRUGS (8)
  1. LAVENDER ESSENTIAL OIL [Concomitant]
  2. VETIVER ESSENTIAL OIL [Concomitant]
  3. FRANKINCENSE ESSENTIAL OIL [Concomitant]
  4. SINGULAIR [Suspect]
     Active Substance: MONTELUKAST SODIUM
     Route: 048
  5. ZOLOFT [Concomitant]
     Active Substance: SERTRALINE HYDROCHLORIDE
  6. ORGANIC MULTI-VITAMIN [Concomitant]
  7. CEDAR WOOD ESSENTIAL OIL [Concomitant]
  8. FISH OIL [Concomitant]
     Active Substance: FISH OIL

REACTIONS (2)
  - Obsessive-compulsive disorder [None]
  - Attention deficit/hyperactivity disorder [None]
